FAERS Safety Report 9412837 (Version 1)
Quarter: 2013Q3

REPORT INFORMATION
  Report Type: Spontaneous
  Country: GB (occurrence: GB)
  Receive Date: 20130722
  Receipt Date: 20130722
  Transmission Date: 20140515
  Serious: Yes (Other)
  Sender: FDA-Public Use
  Company Number: PHHY2013GB075583

PATIENT
  Age: 55 Year
  Sex: Female
  Weight: 60.32 kg

DRUGS (3)
  1. SERTRALINE HYDROCHLORIDE [Suspect]
     Indication: ANXIETY
     Dosage: 50 MG, UNK
     Route: 048
  2. GRAPEFRUIT JUICE [Interacting]
  3. SERTRALINE [Concomitant]
     Dosage: 100 MG, UNK

REACTIONS (2)
  - Food interaction [Unknown]
  - Migraine with aura [Recovered/Resolved]
